FAERS Safety Report 13942477 (Version 2)
Quarter: 2017Q4

REPORT INFORMATION
  Report Type: Report from Study
  Country: US (occurrence: US)
  Receive Date: 20170907
  Receipt Date: 20171010
  Transmission Date: 20180320
  Serious: No
  Sender: FDA-Public Use
  Company Number: US-JNJFOC-20170904269

PATIENT
  Age: 21 Year
  Sex: Female
  Weight: 56.7 kg

DRUGS (1)
  1. REMICADE [Suspect]
     Active Substance: INFLIXIMAB
     Indication: INFLAMMATORY BOWEL DISEASE
     Route: 042
     Dates: start: 20100407

REACTIONS (1)
  - Juvenile idiopathic arthritis [Not Recovered/Not Resolved]

NARRATIVE: CASE EVENT DATE: 20170816
